FAERS Safety Report 17236023 (Version 2)
Quarter: 2020Q2

REPORT INFORMATION
  Report Type: Spontaneous
  Country: IT (occurrence: IT)
  Receive Date: 20200106
  Receipt Date: 20200401
  Transmission Date: 20200713
  Serious: Yes (Other)
  Sender: FDA-Public Use
  Company Number: IT-IGSA-SR10009628

PATIENT

DRUGS (1)
  1. FLEBOGAMMA DIF [Suspect]
     Active Substance: HUMAN IMMUNOGLOBULIN G
     Indication: HYPOGAMMAGLOBULINAEMIA
     Dosage: 15 G, UNK
     Route: 042
     Dates: start: 20190110, end: 20190110

REACTIONS (2)
  - Acute hepatitis C [Recovered/Resolved with Sequelae]
  - Suspected transmission of an infectious agent via product [Recovered/Resolved with Sequelae]

NARRATIVE: CASE EVENT DATE: 20190625
